FAERS Safety Report 11771948 (Version 2)
Quarter: 2016Q1

REPORT INFORMATION
  Report Type: Report from Study
  Country: IT (occurrence: IT)
  Receive Date: 20151124
  Receipt Date: 20160122
  Transmission Date: 20160525
  Serious: Yes (Hospitalization)
  Sender: FDA-Public Use
  Company Number: PHHO2015IT019410

PATIENT
  Age: 5 Year
  Sex: Male
  Weight: 24.6 kg

DRUGS (1)
  1. ACZ885 [Suspect]
     Active Substance: CANAKINUMAB
     Indication: JUVENILE IDIOPATHIC ARTHRITIS
     Dosage: 4 MG/KG, EVERY 28 DAYS
     Route: 058
     Dates: start: 20150803

REACTIONS (1)
  - Mononucleosis syndrome [Recovered/Resolved]

NARRATIVE: CASE EVENT DATE: 20151104
